FAERS Safety Report 5400750-4 (Version None)
Quarter: 2007Q3

REPORT INFORMATION
  Report Type: 
  Country: None (occurrence: None)
  Receive Date: 20070730
  Receipt Date: 20070718
  Transmission Date: 20080115
  Serious: Yes (Other)
  Sender: FDA-Public Use
  Company Number: GB-PFIZER INC-2007059705

PATIENT
  Age: 57 Year
  Sex: Female
  Weight: 60 kg

DRUGS (5)
  1. LYRICA [Suspect]
     Indication: POST HERPETIC NEURALGIA
     Route: 048
     Dates: start: 20070613, end: 20070629
  2. AMOXICILLIN [Concomitant]
     Route: 048
     Dates: start: 20070516, end: 20070523
  3. CODEINE PHOSPHATE AND ACETAMINOPHEN [Concomitant]
  4. FAMCICLOVIR [Concomitant]
     Indication: HERPES ZOSTER
     Dosage: DAILY DOSE:750MG
     Route: 048
     Dates: start: 20070521, end: 20070528
  5. METRONIDAZOLE [Concomitant]
     Indication: ABDOMINAL PAIN
     Route: 048
     Dates: start: 20070516, end: 20070523

REACTIONS (1)
  - GASTROOESOPHAGEAL REFLUX DISEASE [None]
